FAERS Safety Report 13239384 (Version 11)
Quarter: 2018Q3

REPORT INFORMATION
  Report Type: Report from Study
  Country: None (occurrence: JP)
  Receive Date: 20170216
  Receipt Date: 20180903
  Transmission Date: 20181010
  Serious: Yes (Hospitalization, Other)
  Sender: FDA-Public Use
  Company Number: JP-ABBVIE-17P-087-1877342-00

PATIENT
  Age: 73 Year
  Sex: Male
  Weight: 60 kg

DRUGS (5)
  1. DUODOPA [Suspect]
     Active Substance: CARBIDOPA\LEVODOPA
     Indication: PARKINSON^S DISEASE
     Dosage: MD: 7 ML, CD: 2.5 ML/HR X 16 HR
     Route: 050
     Dates: start: 20170116, end: 20170122
  2. ROTIGOTINE [Concomitant]
     Active Substance: ROTIGOTINE
     Indication: PARKINSON^S DISEASE
     Route: 062
  3. DUODOPA [Suspect]
     Active Substance: CARBIDOPA\LEVODOPA
     Dosage: MD: 7 ML, CD: 2.5 ML/HR X 16 HR
     Route: 050
     Dates: start: 20170123
  4. PRAMIPEXOLE. [Concomitant]
     Active Substance: PRAMIPEXOLE
     Indication: PARKINSON^S DISEASE
     Dosage: THE AMOUNT OF LEVODOPA CONVERTED TO 16?HOUR DOSE DURING DAYTIME WAS 1.5 MG.
     Route: 048
  5. NEODOPASTON [Concomitant]
     Active Substance: CARBIDOPA\LEVODOPA
     Indication: PARKINSON^S DISEASE
     Dosage: THE AMOUNT OF LEVODOPA CONVERTED TO 16?HOUR DOSE DURING DAYTIME WAS 500 MG.
     Route: 048

REACTIONS (6)
  - Excessive granulation tissue [Recovered/Resolved]
  - Cholecystitis [Recovered/Resolved]
  - Pulmonary artery thrombosis [Unknown]
  - Delirium [Unknown]
  - Cognitive disorder [Unknown]
  - Stoma site infection [Recovered/Resolved]

NARRATIVE: CASE EVENT DATE: 20170126
